FAERS Safety Report 8094612-4 (Version None)
Quarter: 2012Q1

REPORT INFORMATION
  Report Type: 
  Country: None (occurrence: None)
  Receive Date: 20120131
  Receipt Date: 20120119
  Transmission Date: 20120608
  Serious: Yes (Other)
  Sender: FDA-Public Use
  Company Number: IT-ELI_LILLY_AND_COMPANY-IT201107007493

PATIENT
  Sex: Male

DRUGS (4)
  1. ALIMTA [Suspect]
     Indication: LUNG ADENOCARCINOMA METASTATIC
     Dosage: 885.5 MG, PER CYCLE
     Route: 042
     Dates: start: 20110628
  2. DOBETIN [Concomitant]
     Dosage: 1000 MCG/ML
  3. FOLIC ACID [Concomitant]
     Dosage: UNK, QD
  4. CISPLATIN [Concomitant]

REACTIONS (5)
  - DEHYDRATION [None]
  - RASH PAPULAR [None]
  - PARAESTHESIA [None]
  - NAUSEA [None]
  - HYPOPHAGIA [None]
